FAERS Safety Report 11677982 (Version 1)
Quarter: 2015Q4

REPORT INFORMATION
  Report Type: Spontaneous
  Country: US (occurrence: US)
  Receive Date: 20151027
  Receipt Date: 20151027
  Transmission Date: 20160304
  Serious: No
  Sender: FDA-Public Use
  Company Number: US-ELI_LILLY_AND_COMPANY-US201008001858

PATIENT
  Sex: Female

DRUGS (7)
  1. FORTEO [Suspect]
     Active Substance: TERIPARATIDE
     Indication: OSTEOPOROSIS
     Dosage: 20 UG, DAILY (1/D)
  2. CITRICAL [Concomitant]
     Active Substance: CALCIUM CITRATE
     Dosage: 2 D/F, 2/D
  3. LISINOPRIL. [Concomitant]
     Active Substance: LISINOPRIL
     Dosage: 10 MG, DAILY (1/D)
  4. VERAPAMIL [Concomitant]
     Active Substance: VERAPAMIL HYDROCHLORIDE
     Dosage: 200 MG, DAILY (1/D)
  5. VITAMIN D [Concomitant]
     Active Substance: CHOLECALCIFEROL
     Dosage: 1000 IU, 2/D
  6. FORTEO [Suspect]
     Active Substance: TERIPARATIDE
     Dosage: 20 UG, DAILY (1/D)
  7. FORTEO [Suspect]
     Active Substance: TERIPARATIDE
     Dosage: 20 UG, DAILY (1/D)

REACTIONS (13)
  - Escherichia test positive [Recovering/Resolving]
  - Neck pain [Unknown]
  - Injection site erythema [Recovered/Resolved]
  - Pain [Recovering/Resolving]
  - Chest discomfort [Unknown]
  - Paraesthesia [Unknown]
  - Dyspnoea [Unknown]
  - Facial pain [Unknown]
  - Gingival pain [Unknown]
  - Fracture [Unknown]
  - Pain in jaw [Unknown]
  - Flank pain [Recovering/Resolving]
  - Bone pain [Unknown]
